FAERS Safety Report 23700076 (Version 2)
Quarter: 2024Q2

REPORT INFORMATION
  Report Type: Other
  Country: US (occurrence: None)
  Receive Date: 20240403
  Receipt Date: 20240403
  Transmission Date: 20240715
  Serious: No
  Sender: FDA-Public Use
  Company Number: US-ROCHE-3536865

PATIENT
  Age: 61 Year
  Sex: Female
  Weight: 63.56 kg

DRUGS (6)
  1. OCREVUS [Suspect]
     Active Substance: OCRELIZUMAB
     Indication: Secondary progressive multiple sclerosis
     Route: 042
  2. OCREVUS [Suspect]
     Active Substance: OCRELIZUMAB
     Indication: Relapsing multiple sclerosis
  3. MODERNA COVID-19 VACCINE [Concomitant]
     Active Substance: ELASOMERAN
  4. DULOXETINE [Concomitant]
     Active Substance: DULOXETINE
  5. GEMTESA [Concomitant]
     Active Substance: VIBEGRON
  6. ZOLPIDEM [Concomitant]
     Active Substance: ZOLPIDEM TARTRATE

REACTIONS (1)
  - COVID-19 [Recovered/Resolved]

NARRATIVE: CASE EVENT DATE: 20240216
